FAERS Safety Report 25160321 (Version 1)
Quarter: 2025Q2

REPORT INFORMATION
  Report Type: Spontaneous
  Country: CN (occurrence: CN)
  Receive Date: 20250404
  Receipt Date: 20250404
  Transmission Date: 20250716
  Serious: Yes (Other)
  Sender: PFIZER
  Company Number: CN-PFIZER INC-PV202500039082

PATIENT
  Age: 6 Year
  Sex: Female
  Weight: 22.5 kg

DRUGS (4)
  1. CYTARABINE [Suspect]
     Active Substance: CYTARABINE
     Indication: Acute lymphocytic leukaemia
     Dosage: 50 MG, 1X/DAY
     Route: 041
     Dates: start: 20250305, end: 20250308
  2. CYTARABINE [Suspect]
     Active Substance: CYTARABINE
     Dosage: 50 MG, 1X/DAY
     Route: 041
     Dates: start: 20250312, end: 20250315
  3. PEGASPARGASE [Suspect]
     Active Substance: PEGASPARGASE
     Indication: Acute lymphocytic leukaemia
     Dosage: 2000 IU, 1X/DAY
     Route: 030
     Dates: start: 20250304, end: 20250304
  4. CYCLOPHOSPHAMIDE [Suspect]
     Active Substance: CYCLOPHOSPHAMIDE
     Indication: Acute lymphocytic leukaemia
     Dosage: 800 MG, 1X/DAY
     Route: 041
     Dates: start: 20250303, end: 20250303

REACTIONS (1)
  - Hepatic enzyme increased [Recovering/Resolving]

NARRATIVE: CASE EVENT DATE: 20250320
